FAERS Safety Report 21894861 (Version 1)
Quarter: 2023Q1

REPORT INFORMATION
  Report Type: Spontaneous
  Country: JP (occurrence: JP)
  Receive Date: 20230122
  Receipt Date: 20230122
  Transmission Date: 20230417
  Serious: Yes (Other)
  Sender: FDA-Public Use
  Company Number: JP-KYOWAKIRIN-2022AKK010650

PATIENT
  Age: 8 Decade
  Sex: Female

DRUGS (8)
  1. PEGFILGRASTIM [Suspect]
     Active Substance: PEGFILGRASTIM
     Indication: Colony stimulating factor therapy
     Dosage: 3.6 MG, THE PATIENT RECEIVED G-LASTA ONCE DURING THE 6TH CYCLE OF THE FIRST TETRACYCLINE (TC) PLUS B
     Route: 058
     Dates: start: 20210331, end: 20210331
  2. PEGFILGRASTIM [Suspect]
     Active Substance: PEGFILGRASTIM
     Dosage: 3.6 MG, ONCE DURING THE FIRST CYCLE OF THE TC PLUS BEV REGIMEN AFTER RECURRENCE
     Route: 058
     Dates: start: 20220624, end: 20220624
  3. CARBOPLATIN [Suspect]
     Active Substance: CARBOPLATIN
     Indication: Malignant peritoneal neoplasm
     Dosage: 6 MG, 1X/3 WEEKS
     Route: 042
     Dates: start: 20210329
  4. CARBOPLATIN [Suspect]
     Active Substance: CARBOPLATIN
     Dosage: 5 MG, 1X/3 WEEKS
     Route: 042
     Dates: start: 20220622
  5. PACLITAXEL [Concomitant]
     Active Substance: PACLITAXEL
     Indication: Malignant peritoneal neoplasm
     Dosage: 175 MG/M2, 1X/3 WEEKS
     Route: 042
     Dates: start: 20210329
  6. PACLITAXEL [Concomitant]
     Active Substance: PACLITAXEL
     Dosage: 175 MG/M2, 1X/3 WEEKS
     Route: 042
     Dates: start: 20220622
  7. BEVACIZUMAB [Concomitant]
     Active Substance: BEVACIZUMAB
     Indication: Malignant peritoneal neoplasm
     Dosage: 15 MG/KG, 1X/3 WEEKS
     Route: 042
     Dates: start: 20210329
  8. BEVACIZUMAB [Concomitant]
     Active Substance: BEVACIZUMAB
     Dosage: 15 MG/KG, 1X/3 WEEKS
     Route: 042
     Dates: start: 20220622

REACTIONS (4)
  - Febrile neutropenia [Recovered/Resolved]
  - Vasculitis [Recovered/Resolved]
  - Vasculitis [Recovered/Resolved]
  - Hepatic enzyme increased [Recovered/Resolved]

NARRATIVE: CASE EVENT DATE: 20210331
